FAERS Safety Report 5792729-8 (Version None)
Quarter: 2008Q2

REPORT INFORMATION
  Report Type: 
  Country: None (occurrence: None)
  Receive Date: 20080624
  Receipt Date: 20080610
  Transmission Date: 20081010
  Serious: Yes (Other)
  Sender: FDA-Public Use
  Company Number: 2008AL005180

PATIENT
  Age: 67 Year
  Sex: Male
  Weight: 77.5651 kg

DRUGS (4)
  1. DIGOXIN [Suspect]
     Indication: ATRIAL FIBRILLATION
     Dosage: 0.125 MG, QD, PO; 2 YEARS AGO
     Route: 048
  2. LIPITOR [Concomitant]
  3. ZEBETA [Concomitant]
  4. CARDIZEM [Concomitant]

REACTIONS (9)
  - ANEURYSM [None]
  - ATRIAL FIBRILLATION [None]
  - CHEST PAIN [None]
  - CHOLECYSTECTOMY [None]
  - DIZZINESS [None]
  - DYSPNOEA [None]
  - HERNIA [None]
  - OEDEMA PERIPHERAL [None]
  - PULSE ABNORMAL [None]
